FAERS Safety Report 15115948 (Version 1)
Quarter: 2018Q3

REPORT INFORMATION
  Report Type: Spontaneous
  Country: DE (occurrence: DE)
  Receive Date: 20180706
  Receipt Date: 20180706
  Transmission Date: 20181010
  Serious: Yes (Hospitalization, Congenital Anomaly, Other)
  Sender: FDA-Public Use
  Company Number: DE-VISTAPHARM, INC.-VER201806-000730

PATIENT
  Sex: Male

DRUGS (16)
  1. PREDNISOLONE. [Suspect]
     Active Substance: PREDNISOLONE
     Indication: PRODUCT USED FOR UNKNOWN INDICATION
     Route: 064
  2. CYCLOPHOSPHAMIDE. [Suspect]
     Active Substance: CYCLOPHOSPHAMIDE
     Indication: PRODUCT USED FOR UNKNOWN INDICATION
     Route: 064
  3. DOXORUBICIN [Suspect]
     Active Substance: DOXORUBICIN
  4. RITUXIMAB. [Suspect]
     Active Substance: RITUXIMAB
     Indication: PRODUCT USED FOR UNKNOWN INDICATION
     Route: 064
  5. RITUXIMAB. [Suspect]
     Active Substance: RITUXIMAB
  6. RITUXIMAB. [Suspect]
     Active Substance: RITUXIMAB
  7. VINCRISTINE [Suspect]
     Active Substance: VINCRISTINE
  8. VINCRISTINE [Suspect]
     Active Substance: VINCRISTINE
  9. CYCLOPHOSPHAMIDE. [Suspect]
     Active Substance: CYCLOPHOSPHAMIDE
  10. CYCLOPHOSPHAMIDE. [Suspect]
     Active Substance: CYCLOPHOSPHAMIDE
  11. DOXORUBICIN [Suspect]
     Active Substance: DOXORUBICIN
  12. PREDNISOLONE. [Suspect]
     Active Substance: PREDNISOLONE
  13. DOXORUBICIN [Suspect]
     Active Substance: DOXORUBICIN
     Indication: PRODUCT USED FOR UNKNOWN INDICATION
     Route: 064
  14. PREDNISOLONE. [Suspect]
     Active Substance: PREDNISOLONE
  15. RITUXIMAB. [Suspect]
     Active Substance: RITUXIMAB
  16. VINCRISTINE [Suspect]
     Active Substance: VINCRISTINE
     Indication: PRODUCT USED FOR UNKNOWN INDICATION
     Route: 064

REACTIONS (2)
  - Congestive cardiomyopathy [Recovering/Resolving]
  - Foetal exposure during pregnancy [Unknown]
